FAERS Safety Report 6499592-0 (Version None)
Quarter: 2009Q4

REPORT INFORMATION
  Report Type: 
  Country: None (occurrence: None)
  Receive Date: 20091209
  Receipt Date: 20080722
  Transmission Date: 20100525
  Serious: No
  Sender: FDA-Public Use
  Company Number: M2008-013

PATIENT
  Sex: Female

DRUGS (1)
  1. PATIENT CPP M2008-013-1 STD GLY CONCENTRATE HOLLIST-STIER [Suspect]
     Indication: HYPERSENSITIVITY
     Dosage: 0.03 ML EVERY 2 DAYS INJECTION SEVERAL YEARS

REACTIONS (2)
  - FEELING ABNORMAL [None]
  - INJECTION SITE URTICARIA [None]
